FAERS Safety Report 10685843 (Version 11)
Quarter: 2015Q2

REPORT INFORMATION
  Report Type: Spontaneous
  Country: US (occurrence: US)
  Receive Date: 20141231
  Receipt Date: 20150406
  Transmission Date: 20150821
  Serious: Yes (Other)
  Sender: FDA-Public Use
  Company Number: US-UNITED THERAPEUTICS-UNT-2014-011648

PATIENT
  Sex: Female
  Weight: 48.53 kg

DRUGS (10)
  1. TRACLEER [Concomitant]
     Active Substance: BOSENTAN\BOSENTAN MONOHYDRATE
     Indication: PRODUCT USED FOR UNKNOWN INDICATION
  2. REMODULIN [Suspect]
     Active Substance: TREPROSTINIL
     Dosage: 0.025 ?G/KG, CONTINUING
     Route: 058
  3. TYVASO [Suspect]
     Active Substance: TREPROSTINIL
     Indication: PULMONARY ARTERIAL HYPERTENSION
     Dosage: 6-54 ?G, QID
     Dates: start: 20150213
  4. ORENITRAM [Suspect]
     Active Substance: TREPROSTINIL
     Indication: PULMONARY ARTERIAL HYPERTENSION
     Dosage: 1.75 MG, Q8H
     Route: 048
     Dates: start: 20140521
  5. TYVASO [Suspect]
     Active Substance: TREPROSTINIL
     Dosage: 6-54 ?G, QID
     Dates: start: 20150213
  6. REMODULIN [Suspect]
     Active Substance: TREPROSTINIL
     Dosage: 0.025 ?G/KG, CONTINUING
     Route: 058
  7. REVATIO [Concomitant]
     Active Substance: SILDENAFIL CITRATE
     Indication: PRODUCT USED FOR UNKNOWN INDICATION
  8. REMODULIN [Suspect]
     Active Substance: TREPROSTINIL
     Indication: PULMONARY ARTERIAL HYPERTENSION
     Dosage: 0.018 ?G/KG, CONTINUING
     Route: 058
     Dates: start: 20141103
  9. REMODULIN [Suspect]
     Active Substance: TREPROSTINIL
     Dosage: 0.022 ?G/KG, CONTINUING
     Route: 058
  10. ASPIRIN                            /00002701/ [Concomitant]
     Active Substance: ASPIRIN
     Indication: PRODUCT USED FOR UNKNOWN INDICATION

REACTIONS (24)
  - Photopsia [Unknown]
  - Burning sensation [Unknown]
  - Dyspnoea [Unknown]
  - Malaise [Unknown]
  - Chest discomfort [Unknown]
  - Blindness [Unknown]
  - Blood pressure decreased [Unknown]
  - Limb discomfort [Unknown]
  - Hypoaesthesia [Unknown]
  - Device issue [Unknown]
  - Infusion site erythema [Unknown]
  - Fatigue [Unknown]
  - Rash erythematous [Unknown]
  - Oedema peripheral [Unknown]
  - Infusion site pain [Unknown]
  - Oedema [Unknown]
  - Pain in extremity [Unknown]
  - Petechiae [Unknown]
  - Pruritus [Unknown]
  - Infusion site oedema [Unknown]
  - Feeling hot [Unknown]
  - Dyspnoea exertional [Unknown]
  - Infusion site extravasation [Unknown]
  - Injection site discharge [Unknown]

NARRATIVE: CASE EVENT DATE: 2014
